FAERS Safety Report 8287582-7 (Version None)
Quarter: 2012Q2

REPORT INFORMATION
  Report Type: 
  Country: None (occurrence: None)
  Receive Date: 20120411
  Receipt Date: 20120320
  Transmission Date: 20120825
  Serious: Yes (Other)
  Sender: FDA-Public Use
  Company Number: FK201200914

PATIENT
  Age: 53 Year
  Sex: Female

DRUGS (4)
  1. DOXORUBICIN HCL [Suspect]
     Indication: BREAST CANCER
  2. DOCETAXEL [Suspect]
     Indication: BREAST CANCER
  3. GRANISETRON HCL [Suspect]
  4. FLUOROURACIL [Suspect]
     Indication: BREAST CANCER

REACTIONS (2)
  - LIBIDO INCREASED [None]
  - FEMALE ORGASMIC DISORDER [None]
